FAERS Safety Report 8364342-X (Version None)
Quarter: 2012Q2

REPORT INFORMATION
  Report Type: 
  Country: None (occurrence: None)
  Receive Date: 20120516
  Receipt Date: 20120510
  Transmission Date: 20120825
  Serious: Yes (Hospitalization, Other)
  Sender: FDA-Public Use
  Company Number: CH-B.I. PHARMACEUTICALS,INC./RIDGEFIELD-2011-DE-04005DE

PATIENT
  Sex: Male
  Weight: 72 kg

DRUGS (13)
  1. METFORMIN HCL [Concomitant]
     Indication: DIABETES MELLITUS
     Dosage: 2000 MG
     Route: 048
     Dates: start: 20040101
  2. DABIGATRAN [Suspect]
     Indication: CEREBROVASCULAR ACCIDENT PROPHYLAXIS
     Route: 048
     Dates: start: 20060802, end: 20120410
  3. DABIGATRAN [Suspect]
     Indication: ATRIAL FIBRILLATION
  4. SINTROM [Concomitant]
     Indication: ATRIAL FIBRILLATION
     Route: 048
     Dates: start: 20120410
  5. METOPROLOL SUCCINATE [Concomitant]
     Indication: CORONARY ARTERY DISEASE
     Dosage: 50 MG
     Route: 048
  6. RAMIPRIL [Concomitant]
     Indication: CORONARY ARTERY DISEASE
     Dosage: 10 MG
     Route: 048
  7. METOPROLOL TARTRATE [Concomitant]
     Indication: HYPERTENSION
     Dosage: 100 MG
     Route: 048
     Dates: start: 20090101
  8. FUROSEMIDE [Concomitant]
     Indication: CORONARY ARTERY DISEASE
     Dosage: 20 MG
     Route: 048
  9. ATORVASTATIN CALCIUM [Concomitant]
     Indication: HYPERLIPIDAEMIA
     Dosage: 40 MG
     Route: 048
     Dates: start: 20060101
  10. ALDACTONE [Concomitant]
     Indication: CORONARY ARTERY DISEASE
     Dosage: 20 MG
     Route: 048
  11. ASPIRINA CARDIO [Concomitant]
     Indication: CORONARY ARTERY DISEASE
     Dosage: 100 MG
     Route: 048
     Dates: start: 20090828
  12. TORSEMIDE [Concomitant]
     Indication: CORONARY ARTERY DISEASE
     Dosage: 20 MG
     Route: 048
     Dates: start: 20090828
  13. ATORVASTATIN CALCIUM [Concomitant]
     Indication: CORONARY ARTERY DISEASE
     Dosage: 40 MG
     Route: 048

REACTIONS (4)
  - WEIGHT DECREASED [None]
  - NEPHROTIC SYNDROME [None]
  - PROTEINURIA [None]
  - GLOMERULONEPHRITIS [None]
